FAERS Safety Report 4940434-X (Version None)
Quarter: 2006Q1

REPORT INFORMATION
  Report Type: 
  Country: None (occurrence: None)
  Receive Date: 20060131
  Receipt Date: 20051229
  Transmission Date: 20060701
  Serious: No
  Sender: FDA-Public Use
  Company Number: 200520960US

PATIENT
  Age: 64 Year
  Sex: Female

DRUGS (4)
  1. KETEK [Suspect]
     Indication: SINUSITIS
     Dosage: 800 MG QD PO
     Route: 048
     Dates: start: 20051224, end: 20051226
  2. LACTOBACILLUS ACIDOPHILUS (ACIDOPHILUS) [Concomitant]
  3. DURAPATITE (HYDROXYAPATITE) [Concomitant]
  4. VITAMIN D [Concomitant]

REACTIONS (6)
  - ABDOMINAL DISTENSION [None]
  - ABDOMINAL PAIN UPPER [None]
  - FLATULENCE [None]
  - FREQUENT BOWEL MOVEMENTS [None]
  - NAUSEA [None]
  - RECTAL HAEMORRHAGE [None]
